FAERS Safety Report 18699772 (Version 1)
Quarter: 2021Q1

REPORT INFORMATION
  Report Type: Spontaneous
  Country: ES (occurrence: ES)
  Receive Date: 20210105
  Receipt Date: 20210105
  Transmission Date: 20210419
  Serious: Yes (Life-Threatening, Hospitalization)
  Sender: FDA-Public Use
  Company Number: ES-ACCORD-212893

PATIENT
  Age: 70 Year
  Sex: Male

DRUGS (7)
  1. CLOMIPRAMINE [Interacting]
     Active Substance: CLOMIPRAMINE
     Indication: CONFUSIONAL STATE
     Dosage: 1?0?1  37.5MG
     Route: 048
     Dates: start: 20201021, end: 20201022
  2. QUETIAPINE. [Interacting]
     Active Substance: QUETIAPINE
     Indication: AGITATION
     Dosage: 1?1?2
     Route: 048
     Dates: start: 20201018, end: 20201019
  3. FORMOTEROL ALDO?UNION [Concomitant]
     Indication: CHRONIC OBSTRUCTIVE PULMONARY DISEASE
     Dosage: STRENGTH:12 MICROGRAMS,60 INHALATION CAPSULES,1 INHALE EVERY 12 HOURS
     Route: 055
     Dates: start: 20191014, end: 20201218
  4. HALOPERIDOL. [Interacting]
     Active Substance: HALOPERIDOL
     Indication: AGITATION
     Dosage: 10 MG COMO RESCATE
     Route: 042
     Dates: start: 20201021, end: 20201021
  5. QUETIAPINE. [Interacting]
     Active Substance: QUETIAPINE
     Indication: AGITATION
     Dosage: 1?2?3
     Route: 048
     Dates: start: 20201019, end: 20201020
  6. DISTRANEURINE [Interacting]
     Active Substance: CLOMETHIAZOLE
     Indication: AGITATION
     Dosage: STRENGTH: 192 MG SOFT CAPSULES, 0?0?1 192MG
     Route: 048
     Dates: start: 20201020, end: 20201022
  7. QUETIAPINE. [Suspect]
     Active Substance: QUETIAPINE
     Indication: AGITATION
     Route: 048
     Dates: start: 20201021, end: 20201022

REACTIONS (3)
  - Neuroleptic malignant syndrome [Recovering/Resolving]
  - Off label use [Unknown]
  - Drug interaction [Unknown]

NARRATIVE: CASE EVENT DATE: 20201021
